FAERS Safety Report 5052155-6 (Version None)
Quarter: 2006Q3

REPORT INFORMATION
  Report Type: 
  Country: None (occurrence: None)
  Receive Date: 20060714
  Receipt Date: 20060714
  Transmission Date: 20061208
  Serious: Yes (Hospitalization, Disabling, Other)
  Sender: FDA-Public Use
  Company Number: None

PATIENT
  Age: 42 Year
  Sex: Male

DRUGS (3)
  1. PAXIL [Suspect]
     Dosage: 40 MG   DAILY   ORAL  1-2 YEARS
     Route: 048
  2. NORTRIPTYLINE HCL [Suspect]
     Dosage: 75 MG   DAILY   ORAL
     Route: 048
  3. UNKNOWN BLOOD PRESSURE MEDICATION [Concomitant]

REACTIONS (7)
  - AGGRESSION [None]
  - AMNESIA [None]
  - BLOOD PRESSURE INCREASED [None]
  - BLOOD PRESSURE SYSTOLIC INCREASED [None]
  - BRAIN DAMAGE [None]
  - PARAESTHESIA [None]
  - PHOTOPSIA [None]
